FAERS Safety Report 24703458 (Version 12)
Quarter: 2025Q1

REPORT INFORMATION
  Report Type: Report from Study
  Country: RU (occurrence: RU)
  Receive Date: 20241205
  Receipt Date: 20250320
  Transmission Date: 20250408
  Serious: Yes (Other)
  Sender: NOVARTIS
  Company Number: RU-002147023-NVSC2024RU224146

PATIENT
  Age: 3 Year
  Sex: Male
  Weight: 14.6 kg

DRUGS (4)
  1. ZOLGENSMA [Suspect]
     Active Substance: ONASEMNOGENE ABEPARVOVEC-XIOI
     Indication: Spinal muscular atrophy
     Route: 041
     Dates: start: 20241030, end: 20241030
  2. PREDNISOLONE [Concomitant]
     Active Substance: PREDNISOLONE
     Indication: Product used for unknown indication
     Dosage: 2 TABLETS + 3/4 TABLET, QD (STRENGTH: 5MG)
     Route: 065
     Dates: start: 20241029
  3. ESOMEPRAZOLE [Concomitant]
     Active Substance: ESOMEPRAZOLE
     Indication: Product used for unknown indication
     Dosage: 1+ 1/2 SACHET, QD (STRENGTH: 10 MG)
     Route: 065
     Dates: start: 20241029
  4. CHOLECALCIFEROL [Concomitant]
     Active Substance: CHOLECALCIFEROL
     Indication: Product used for unknown indication
     Dosage: 2 DROPS, QD (STRENGTH: 500 IU)
     Route: 048
     Dates: start: 20241029

REACTIONS (3)
  - Vomiting [Recovered/Resolved]
  - Body temperature increased [Recovered/Resolved]
  - Blood test abnormal [Not Recovered/Not Resolved]

NARRATIVE: CASE EVENT DATE: 20241101
